FAERS Safety Report 23599748 (Version 1)
Quarter: 2024Q1

REPORT INFORMATION
  Report Type: Spontaneous
  Country: US (occurrence: US)
  Receive Date: 20240306
  Receipt Date: 20240306
  Transmission Date: 20240409
  Serious: Yes (Hospitalization, Other)
  Sender: FDA-Public Use
  Company Number: US-Merck Healthcare KGaA-2024002374

PATIENT
  Sex: Female

DRUGS (2)
  1. REBIF [Suspect]
     Active Substance: INTERFERON BETA-1A
     Indication: Multiple sclerosis
     Route: 058
     Dates: start: 2008
  2. REBIF [Suspect]
     Active Substance: INTERFERON BETA-1A
     Dosage: STRENGTH: 22MCG/0.5 ML
     Route: 058
     Dates: start: 202310

REACTIONS (2)
  - Illness [Unknown]
  - Autoimmune disorder [Recovering/Resolving]
